FAERS Safety Report 8243906-8 (Version None)
Quarter: 2012Q1

REPORT INFORMATION
  Report Type: 
  Country: None (occurrence: None)
  Receive Date: 20120329
  Receipt Date: 20110512
  Transmission Date: 20120608
  Serious: No
  Sender: FDA-Public Use
  Company Number: US-MYLANLABS-2011S1009867

PATIENT
  Age: 47 Year
  Sex: Female

DRUGS (5)
  1. ADVAIR DISKUS 100/50 [Concomitant]
     Indication: ASTHMA
  2. CRESTOR [Concomitant]
     Indication: CEREBROVASCULAR ACCIDENT
  3. LISINOPRIL [Concomitant]
     Indication: CEREBROVASCULAR ACCIDENT
  4. ESTRADIOL [Suspect]
     Indication: HORMONE REPLACEMENT THERAPY
     Dosage: CHANGED QW
     Route: 062
     Dates: start: 20101101, end: 20110101
  5. PLAVIX [Concomitant]
     Indication: CEREBROVASCULAR ACCIDENT

REACTIONS (3)
  - APPLICATION SITE SCAR [None]
  - APPLICATION SITE PRURITUS [None]
  - APPLICATION SITE IRRITATION [None]
